FAERS Safety Report 16854298 (Version 1)
Quarter: 2019Q3

REPORT INFORMATION
  Report Type: Spontaneous
  Country: GB (occurrence: GB)
  Receive Date: 20190926
  Receipt Date: 20190926
  Transmission Date: 20191005
  Serious: Yes (Hospitalization, Other)
  Sender: FDA-Public Use
  Company Number: GB-AUROBINDO-AUR-APL-2019-062425

PATIENT
  Age: 69 Year
  Sex: Male

DRUGS (6)
  1. INVOKANA [Suspect]
     Active Substance: CANAGLIFLOZIN
     Indication: DIABETES MELLITUS
     Dosage: 100 MILLIGRAM, DAILY
     Route: 048
     Dates: start: 20150311, end: 20150327
  2. ATENOLOL. [Concomitant]
     Active Substance: ATENOLOL
     Indication: BLOOD PRESSURE MEASUREMENT
     Dosage: 50 MILLIGRAM,  DAILY (DOSAGE FORM: UNSPECIFIED)
     Route: 065
     Dates: start: 20050105
  3. PERINDOPRIL [Concomitant]
     Active Substance: PERINDOPRIL
     Indication: BLOOD PRESSURE MEASUREMENT
     Dosage: 4 MILLIGRAM, DAILY (DOSAGE FORM: UNSPECIFIED)
     Route: 065
     Dates: start: 20040907
  4. SIMVASTATIN. [Concomitant]
     Active Substance: SIMVASTATIN
     Indication: DIABETES MELLITUS
     Dosage: 20 MILLIGRAM, DAILY (DOSAGE FORM: UNSPECIFIED)
     Route: 065
     Dates: start: 20121024
  5. AMLODIPINE [Concomitant]
     Active Substance: AMLODIPINE BESYLATE
     Indication: BLOOD PRESSURE MEASUREMENT
     Dosage: 5 MILLIGRAM, DAILY (DOSAGE FORM: UNSPECIFIED)
     Route: 065
     Dates: start: 20081231
  6. METFORMIN [Suspect]
     Active Substance: METFORMIN HYDROCHLORIDE
     Indication: DIABETES MELLITUS
     Dosage: 1 GRAM, DAILY (DOSAGE FORM: UNSPECIFIED)
     Route: 048
     Dates: start: 20140610

REACTIONS (2)
  - Pyrexia [Recovering/Resolving]
  - Abdominal pain upper [Recovering/Resolving]
